FAERS Safety Report 7632142-1 (Version None)
Quarter: 2011Q3

REPORT INFORMATION
  Report Type: 
  Country: None (occurrence: None)
  Receive Date: 20110725
  Receipt Date: 20110725
  Transmission Date: 20111222
  Serious: No
  Sender: FDA-Public Use
  Company Number: None

PATIENT
  Age: 36 Year
  Sex: Female
  Weight: 83.007 kg

DRUGS (1)
  1. LEVAQUIN [Suspect]
     Route: 041
     Dates: start: 20070609, end: 20070709

REACTIONS (8)
  - URINARY TRACT INFECTION [None]
  - NEUROPATHY PERIPHERAL [None]
  - ANXIETY [None]
  - SINUSITIS [None]
  - PANIC ATTACK [None]
  - DEPRESSION [None]
  - TENDON DISORDER [None]
  - PAIN [None]
